FAERS Safety Report 23070634 (Version 1)
Quarter: 2023Q4

REPORT INFORMATION
  Report Type: Spontaneous
  Country: IT (occurrence: IT)
  Receive Date: 20231016
  Receipt Date: 20231016
  Transmission Date: 20240110
  Serious: No
  Sender: FDA-Public Use
  Company Number: IT-BEH-2023163248

PATIENT
  Age: 13 Month
  Sex: Female

DRUGS (4)
  1. HUMAN IMMUNOGLOBULIN G [Suspect]
     Active Substance: HUMAN IMMUNOGLOBULIN G
     Indication: Product used for unknown indication
     Dosage: 2000 MILLIGRAM/KILOGRAM
     Route: 042
     Dates: start: 20210507
  2. ASPIRIN [Concomitant]
     Active Substance: ASPIRIN
     Indication: Antiplatelet therapy
     Dosage: 5 MILLIGRAM/KILOGRAM
     Route: 065
     Dates: start: 20210507
  3. CEFTAZIDIME [Concomitant]
     Active Substance: CEFTAZIDIME
     Indication: Antibiotic therapy
     Dosage: UNK
     Route: 065
     Dates: start: 202105, end: 20210507
  4. CEFOTAXIME [Concomitant]
     Active Substance: CEFOTAXIME SODIUM
     Indication: Antibiotic therapy
     Dosage: 50 MILLIGRAM/KILOGRAM
     Route: 065
     Dates: start: 20210507

REACTIONS (1)
  - Measles antibody positive [Unknown]

NARRATIVE: CASE EVENT DATE: 20210501
